FAERS Safety Report 5836694-3 (Version None)
Quarter: 2008Q3

REPORT INFORMATION
  Report Type: 
  Country: None (occurrence: None)
  Receive Date: 20080807
  Receipt Date: 20080729
  Transmission Date: 20090109
  Serious: Yes (Other)
  Sender: FDA-Public Use
  Company Number: US-JNJFOC-20080800041

PATIENT
  Age: 64 Year
  Sex: Female
  Weight: 77.11 kg

DRUGS (7)
  1. ARESTIN [Suspect]
     Indication: DRUG USE FOR UNKNOWN INDICATION
     Route: 065
  2. LANTIS INSULIN [Concomitant]
     Indication: DIABETES MELLITUS
     Route: 065
  3. GLUCOTROL [Concomitant]
     Route: 065
  4. GLUCOPHAGE [Concomitant]
     Route: 065
  5. ALTACE [Concomitant]
  6. CRESTOR [Concomitant]
     Route: 065
  7. BENADRYL [Concomitant]
     Route: 065

REACTIONS (1)
  - RASH GENERALISED [None]
